FAERS Safety Report 15274204 (Version 1)
Quarter: 2018Q3

REPORT INFORMATION
  Report Type: Spontaneous
  Country: NL (occurrence: NL)
  Receive Date: 20180814
  Receipt Date: 20180814
  Transmission Date: 20181010
  Serious: Yes (Hospitalization)
  Sender: FDA-Public Use
  Company Number: NL-TEVA-2018-NL-943059

PATIENT
  Age: 70 Year
  Sex: Female

DRUGS (19)
  1. CLOMIPRAMINE [Interacting]
     Active Substance: CLOMIPRAMINE
     Indication: DEPRESSION
     Route: 065
  2. CLOMIPRAMINE [Interacting]
     Active Substance: CLOMIPRAMINE
     Indication: OBSESSIVE-COMPULSIVE DISORDER
  3. HALOPERIDOL. [Interacting]
     Active Substance: HALOPERIDOL
     Indication: DEPRESSION
     Route: 048
  4. LISINOPRIL. [Concomitant]
     Active Substance: LISINOPRIL
     Route: 065
  5. OMEPRAZOLE. [Concomitant]
     Active Substance: OMEPRAZOLE
     Route: 065
  6. FLUVOXAMINE [Interacting]
     Active Substance: FLUVOXAMINE
     Indication: DEPRESSION
  7. HALOPERIDOL. [Interacting]
     Active Substance: HALOPERIDOL
     Indication: POSTOPERATIVE DELIRIUM
  8. METOPROLOL. [Concomitant]
     Active Substance: METOPROLOL
     Route: 065
  9. FLUVOXAMINE [Interacting]
     Active Substance: FLUVOXAMINE
     Indication: OBSESSIVE-COMPULSIVE DISORDER
  10. ZOLPIDEM [Concomitant]
     Active Substance: ZOLPIDEM\ZOLPIDEM TARTRATE
     Route: 065
  11. PRAVASTATIN. [Concomitant]
     Active Substance: PRAVASTATIN
     Route: 065
  12. FLUVOXAMINE [Interacting]
     Active Substance: FLUVOXAMINE
     Indication: ANXIETY
     Dosage: 100 MILLIGRAM DAILY;
     Route: 065
  13. HALOPERIDOL. [Interacting]
     Active Substance: HALOPERIDOL
     Indication: ANXIETY
     Dosage: 3 MILLIGRAM DAILY; LATER, INCREASED TO 3.5 MG/DAY
     Route: 048
  14. HALOPERIDOL. [Interacting]
     Active Substance: HALOPERIDOL
     Indication: OBSESSIVE-COMPULSIVE DISORDER
  15. MELATONIN [Concomitant]
     Active Substance: MELATONIN
     Route: 065
  16. AMLODIPINE [Concomitant]
     Active Substance: AMLODIPINE BESYLATE
     Route: 065
  17. ACETYLSALICYLIC ACID [Concomitant]
     Active Substance: ASPIRIN
     Route: 065
  18. CLOMIPRAMINE [Suspect]
     Active Substance: CLOMIPRAMINE
     Indication: ANXIETY
     Dosage: 50 MILLIGRAM DAILY; LATER INCREASED TO 100 MG/DAY
     Route: 065
  19. HYDROCHLOROTHIAZIDE. [Concomitant]
     Active Substance: HYDROCHLOROTHIAZIDE
     Route: 065

REACTIONS (5)
  - Agitation [Recovering/Resolving]
  - Confusional state [Recovering/Resolving]
  - Drug level increased [Recovered/Resolved]
  - Drug interaction [Recovered/Resolved]
  - Toxicity to various agents [Recovering/Resolving]
